FAERS Safety Report 19941847 (Version 1)
Quarter: 2021Q4

REPORT INFORMATION
  Report Type: Spontaneous
  Country: US (occurrence: US)
  Receive Date: 20211011
  Receipt Date: 20211011
  Transmission Date: 20220303
  Serious: No
  Sender: FDA-Public Use
  Company Number: US-GW PHARMA-202110USGW04835

PATIENT

DRUGS (1)
  1. EPIDIOLEX [Suspect]
     Active Substance: CANNABIDIOL
     Indication: Epilepsy
     Dosage: 2.35 MG/KG/DAY, 100 MILLIGRAM, BID
     Route: 048
     Dates: start: 202102

REACTIONS (5)
  - Mood altered [Unknown]
  - Insomnia [Unknown]
  - Agitation [Unknown]
  - Irritability [Unknown]
  - Aggression [Unknown]

NARRATIVE: CASE EVENT DATE: 20210101
